FAERS Safety Report 17521505 (Version 1)
Quarter: 2020Q1

REPORT INFORMATION
  Report Type: Spontaneous
  Country: US (occurrence: US)
  Receive Date: 20200310
  Receipt Date: 20200310
  Transmission Date: 20200409
  Serious: No
  Sender: FDA-Public Use
  Company Number: US-009507513-2002USA009522

PATIENT
  Age: 19 Year
  Sex: Male

DRUGS (1)
  1. SYLATRON [Suspect]
     Active Substance: PEGINTERFERON ALFA-2B
     Indication: BENIGN NEOPLASM OF ORBIT
     Dosage: 60 MICROGRAM; (FREQUENCY: ^OTHER^)
     Route: 058
     Dates: start: 201910

REACTIONS (1)
  - Off label use [Unknown]

NARRATIVE: CASE EVENT DATE: 201910
